FAERS Safety Report 7497398-7 (Version None)
Quarter: 2011Q2

REPORT INFORMATION
  Report Type: 
  Country: None (occurrence: None)
  Receive Date: 20110523
  Receipt Date: 20110511
  Transmission Date: 20111010
  Serious: Yes (Other)
  Sender: FDA-Public Use
  Company Number: US-MYLANLABS-2011S1010013

PATIENT
  Sex: Male

DRUGS (2)
  1. NSAID'S [Suspect]
  2. AMNESTEEM [Suspect]
     Dates: end: 20110202

REACTIONS (1)
  - RENAL FAILURE ACUTE [None]
